FAERS Safety Report 9103256 (Version 1)
Quarter: 2013Q1

REPORT INFORMATION
  Report Type: Report from Study
  Country: IT (occurrence: IT)
  Receive Date: 20130219
  Receipt Date: 20130219
  Transmission Date: 20140127
  Serious: Yes (Life-Threatening)
  Sender: FDA-Public Use
  Company Number: IT-009507513-1302ITA000623

PATIENT
  Age: 62 Year
  Sex: Male

DRUGS (1)
  1. INTERFERON ALFA-2B [Suspect]
     Indication: MALIGNANT MELANOMA STAGE III
     Dosage: 20 MU/M2/D, 5 DAYS/WEEK X4 WEEKS
     Route: 042

REACTIONS (2)
  - Platelet toxicity [Unknown]
  - Hypoglycaemia [Unknown]
